FAERS Safety Report 6697664-9 (Version None)
Quarter: 2010Q2

REPORT INFORMATION
  Report Type: 
  Country: None (occurrence: None)
  Receive Date: 20100423
  Receipt Date: 20100407
  Transmission Date: 20101027
  Serious: Yes (Hospitalization)
  Sender: FDA-Public Use
  Company Number: 230155K08USA

PATIENT
  Age: 58 Year
  Sex: Female
  Weight: 46 kg

DRUGS (6)
  1. REBIF [Suspect]
     Indication: MULTIPLE SCLEROSIS
     Dosage: 44 MCG, 3 IN 1 WK, SUBCUTANEOUS
     Route: 058
     Dates: start: 20080825
  2. ZOLOFT [Suspect]
  3. MEGACE [Concomitant]
  4. PROTONIX [Concomitant]
  5. FLOMAX (MORNIFLUMATE) [Concomitant]
  6. CALTRATE VITAMIN C+D (ALL OTHER THERAPEUTIC PRODUCTS) [Concomitant]

REACTIONS (4)
  - CONVULSION [None]
  - FACIAL BONES FRACTURE [None]
  - FALL [None]
  - LOSS OF CONSCIOUSNESS [None]
